FAERS Safety Report 14296554 (Version 6)
Quarter: 2021Q4

REPORT INFORMATION
  Report Type: Spontaneous
  Country: NL (occurrence: NL)
  Receive Date: 20171218
  Receipt Date: 20211106
  Transmission Date: 20220303
  Serious: Yes (Death, Other)
  Sender: FDA-Public Use
  Company Number: NL-AUROBINDO-AUR-APL-2017-45486

PATIENT
  Sex: Male

DRUGS (1)
  1. OXYCODONE [Suspect]
     Active Substance: OXYCODONE
     Indication: Compression fracture
     Dosage: UNK
     Route: 048

REACTIONS (4)
  - Death [Fatal]
  - Delirium [Recovered/Resolved]
  - Fall [Recovered/Resolved]
  - Unevaluable event [Unknown]
